FAERS Safety Report 7810789-7 (Version None)
Quarter: 2011Q4

REPORT INFORMATION
  Report Type: 
  Country: None (occurrence: None)
  Receive Date: 20111011
  Receipt Date: 20111003
  Transmission Date: 20120403
  Serious: Yes (Other)
  Sender: FDA-Public Use
  Company Number: GER/UKI/11/0021419

PATIENT
  Age: 60 Year
  Sex: Female
  Weight: 77.4 kg

DRUGS (16)
  1. DIAZEPAM [Suspect]
     Indication: MANIA
     Dosage: 15; 10 MG, 2 IN 1 D, ORAL
     Route: 048
     Dates: start: 20110826, end: 20110912
  2. DIAZEPAM [Suspect]
     Indication: PSYCHOTIC DISORDER
     Dosage: 15; 10 MG, 2 IN 1 D, ORAL
     Route: 048
     Dates: start: 20110826, end: 20110912
  3. DIAZEPAM [Suspect]
     Indication: BIPOLAR DISORDER
     Dosage: 15; 10 MG, 2 IN 1 D, ORAL
     Route: 048
     Dates: start: 20110826, end: 20110912
  4. DIAZEPAM [Suspect]
     Indication: MANIA
     Dosage: 15; 10 MG, 2 IN 1 D, ORAL
     Route: 048
     Dates: start: 20110912, end: 20110914
  5. DIAZEPAM [Suspect]
     Indication: PSYCHOTIC DISORDER
     Dosage: 15; 10 MG, 2 IN 1 D, ORAL
     Route: 048
     Dates: start: 20110912, end: 20110914
  6. DIAZEPAM [Suspect]
     Indication: BIPOLAR DISORDER
     Dosage: 15; 10 MG, 2 IN 1 D, ORAL
     Route: 048
     Dates: start: 20110912, end: 20110914
  7. QUETIAPINE FUMARATE [Suspect]
     Indication: PSYCHOTIC DISORDER
     Dosage: 600;800 MG, 1 IN 1 D, ORAL
     Route: 048
     Dates: start: 20110904, end: 20110912
  8. QUETIAPINE FUMARATE [Suspect]
     Indication: BIPOLAR DISORDER
     Dosage: 600;800 MG, 1 IN 1 D, ORAL
     Route: 048
     Dates: start: 20110904, end: 20110912
  9. QUETIAPINE FUMARATE [Suspect]
     Indication: MANIA
     Dosage: 600;800 MG, 1 IN 1 D, ORAL
     Route: 048
     Dates: start: 20110904, end: 20110912
  10. QUETIAPINE FUMARATE [Suspect]
     Indication: PSYCHOTIC DISORDER
     Dosage: 600;800 MG, 1 IN 1 D, ORAL
     Route: 048
     Dates: start: 20110912, end: 20110914
  11. QUETIAPINE FUMARATE [Suspect]
     Indication: BIPOLAR DISORDER
     Dosage: 600;800 MG, 1 IN 1 D, ORAL
     Route: 048
     Dates: start: 20110912, end: 20110914
  12. QUETIAPINE FUMARATE [Suspect]
     Indication: MANIA
     Dosage: 600;800 MG, 1 IN 1 D, ORAL
     Route: 048
     Dates: start: 20110912, end: 20110914
  13. TRAVOPROST (TRAVOPROST) [Concomitant]
  14. AMLODIPINE [Suspect]
     Indication: PRODUCT USED FOR UNKNOWN INDICATION
  15. LISINOPRIL [Concomitant]
  16. VALPROIC ACID [Concomitant]

REACTIONS (8)
  - CONFUSIONAL STATE [None]
  - DEPRESSED LEVEL OF CONSCIOUSNESS [None]
  - COMA SCALE ABNORMAL [None]
  - TACHYCARDIA [None]
  - HYPOTENSION [None]
  - ATAXIA [None]
  - SOMNOLENCE [None]
  - VISION BLURRED [None]
